FAERS Safety Report 7915760-2 (Version None)
Quarter: 2011Q4

REPORT INFORMATION
  Report Type: 
  Country: None (occurrence: None)
  Receive Date: 20111115
  Receipt Date: 20111108
  Transmission Date: 20120403
  Serious: Yes (Hospitalization)
  Sender: FDA-Public Use
  Company Number: AU-B.I. PHARMACEUTICALS,INC./RIDGEFIELD-2011-AU-02124AU

PATIENT
  Sex: Female

DRUGS (2)
  1. PRADAXA [Suspect]
     Dosage: 220 MG
  2. DIURETIC [Concomitant]

REACTIONS (3)
  - DEHYDRATION [None]
  - ABDOMINAL PAIN [None]
  - DIARRHOEA [None]
